FAERS Safety Report 7279670-9 (Version None)
Quarter: 2011Q1

REPORT INFORMATION
  Report Type: 
  Country: None (occurrence: None)
  Receive Date: 20110203
  Receipt Date: 20110203
  Transmission Date: 20110831
  Serious: Yes (Disabling)
  Sender: FDA-Public Use
  Company Number: None

PATIENT
  Age: 30 Year
  Sex: Female
  Weight: 64.8644 kg

DRUGS (1)
  1. GABAPENTIN [Suspect]
     Indication: NEUROPATHY PERIPHERAL
     Dosage: 100MG EVERY DAY
     Dates: start: 20100811, end: 20100822

REACTIONS (16)
  - MENTAL DISORDER [None]
  - PAIN IN EXTREMITY [None]
  - FEAR [None]
  - THINKING ABNORMAL [None]
  - CRYING [None]
  - ANXIETY [None]
  - PAIN [None]
  - ABNORMAL BEHAVIOUR [None]
  - WITHDRAWAL SYNDROME [None]
  - DYSKINESIA [None]
  - MUSCLE TWITCHING [None]
  - NAUSEA [None]
  - PARAESTHESIA [None]
  - FEELING ABNORMAL [None]
  - TREMOR [None]
  - MOOD ALTERED [None]
